FAERS Safety Report 18339997 (Version 4)
Quarter: 2022Q2

REPORT INFORMATION
  Report Type: Spontaneous
  Country: US (occurrence: US)
  Receive Date: 20201002
  Receipt Date: 20220413
  Transmission Date: 20220720
  Serious: Yes (Other)
  Sender: FDA-Public Use
  Company Number: NVSC2020US263256

PATIENT
  Age: 71 Year
  Sex: Male
  Weight: 71 kg

DRUGS (24)
  1. KYMRIAH [Suspect]
     Active Substance: TISAGENLECLEUCEL
     Indication: Diffuse large B-cell lymphoma refractory
     Dosage: 4.3E8 CAR T POS CELLS
     Route: 042
     Dates: start: 20200504, end: 20200504
  2. ZOVIRAX [Concomitant]
     Active Substance: ACYCLOVIR
     Indication: Antiviral prophylaxis
     Dosage: 1 DF, BID (FOR 14 DAYS)
     Route: 048
  3. ZOVIRAX [Concomitant]
     Active Substance: ACYCLOVIR
     Dosage: 800 MG, BID
     Route: 048
     Dates: start: 20200504, end: 20200518
  4. DIFLUCAN [Concomitant]
     Active Substance: FLUCONAZOLE
     Indication: Antifungal prophylaxis
     Dosage: 400 MG, QD
     Route: 048
     Dates: start: 20200504, end: 20200518
  5. LEVAQUIN [Concomitant]
     Active Substance: LEVOFLOXACIN
     Indication: Antibiotic prophylaxis
     Dosage: 1 DF
     Route: 048
     Dates: start: 20200427
  6. LEVAQUIN [Concomitant]
     Active Substance: LEVOFLOXACIN
     Dosage: 750 MG, QD
     Route: 048
     Dates: start: 20200504, end: 20200518
  7. MAGNESIUM [Concomitant]
     Active Substance: MAGNESIUM
     Indication: Product used for unknown indication
     Route: 065
  8. CALCIUM CITRATE [Concomitant]
     Active Substance: CALCIUM CITRATE
     Indication: Product used for unknown indication
     Dosage: 1 DF, QD
     Route: 065
  9. ZOFRAN [Concomitant]
     Active Substance: ONDANSETRON HYDROCHLORIDE
     Indication: Nausea
     Dosage: 1 DF, Q8H
     Route: 065
  10. ZOFRAN [Concomitant]
     Active Substance: ONDANSETRON HYDROCHLORIDE
     Indication: Vomiting
     Dosage: 8 MG, Q8H
     Route: 042
     Dates: start: 20200506, end: 20200508
  11. ZOFRAN [Concomitant]
     Active Substance: ONDANSETRON HYDROCHLORIDE
     Dosage: 8 MG, Q8H
     Route: 048
     Dates: start: 20200506, end: 20200508
  12. COMPAZINE [Concomitant]
     Active Substance: PROCHLORPERAZINE MALEATE
     Indication: Nausea
     Dosage: 1 DF, Q6H
     Route: 065
  13. COMPAZINE [Concomitant]
     Active Substance: PROCHLORPERAZINE MALEATE
     Indication: Vomiting
  14. TYLENOL [Concomitant]
     Active Substance: ACETAMINOPHEN
     Indication: Pyrexia
     Dosage: 1 DF, Q4H (AS NEEDED FOR FEVER)
     Route: 054
  15. TOPROL XL [Concomitant]
     Active Substance: METOPROLOL SUCCINATE
     Indication: Hypertension
     Dosage: 1 DF
     Route: 065
  16. TOPROL XL [Concomitant]
     Active Substance: METOPROLOL SUCCINATE
     Dosage: 12.5 MG, QD (NIGHTLY)
     Route: 048
     Dates: start: 20190819, end: 20200428
  17. NIZORAL [Concomitant]
     Active Substance: KETOCONAZOLE
     Indication: Dermatitis
     Dosage: UNK UNK, Q2W (TWICE A WEEK)
     Route: 061
  18. LOPRESSOR [Concomitant]
     Active Substance: METOPROLOL TARTRATE
     Indication: Hypertension
     Dosage: 125 MG, QD
     Route: 048
     Dates: start: 20200429, end: 20200506
  19. DIPHENHYDRAMINE [Concomitant]
     Active Substance: DIPHENHYDRAMINE
     Indication: Infusion related reaction
     Dosage: 12.5 MG, QD
     Route: 048
     Dates: start: 20200504, end: 20200504
  20. KEPPRA [Concomitant]
     Active Substance: LEVETIRACETAM
     Indication: Seizure prophylaxis
     Dosage: 750 MG, BID
     Route: 048
     Dates: start: 20200504, end: 20200518
  21. POTASSIUM CHLORIDE [Concomitant]
     Active Substance: POTASSIUM CHLORIDE
     Indication: Blood potassium increased
     Dosage: 20 MEQ, PRN
     Route: 048
     Dates: start: 20200505, end: 20200518
  22. OLOPATADINE [Concomitant]
     Active Substance: OLOPATADINE
     Indication: Hypersensitivity
     Dosage: 1 DRP
     Route: 047
     Dates: start: 20200508, end: 20200517
  23. DEXTROSE [Concomitant]
     Active Substance: DEXTROSE
     Indication: Constipation
     Dosage: 1 G, QD
     Route: 042
     Dates: start: 20200509, end: 20200510
  24. PRILOSEC [Concomitant]
     Active Substance: OMEPRAZOLE MAGNESIUM
     Indication: Gastrointestinal disorder prophylaxis
     Dosage: 20 MG, QD
     Route: 048
     Dates: start: 20191119, end: 20200420

REACTIONS (12)
  - Conjunctivitis [Recovered/Resolved]
  - Cytokine release syndrome [Recovered/Resolved]
  - Pyrexia [Recovered/Resolved]
  - C-reactive protein increased [Unknown]
  - Hypotension [Recovered/Resolved]
  - Headache [Recovered/Resolved]
  - Blood bilirubin increased [Not Recovered/Not Resolved]
  - Fibrin D dimer increased [Unknown]
  - Prothrombin time abnormal [Unknown]
  - Red blood cell count decreased [Unknown]
  - Blood fibrinogen increased [Unknown]
  - Lymphocyte count decreased [Unknown]

NARRATIVE: CASE EVENT DATE: 20200506
